FAERS Safety Report 15765073 (Version 1)
Quarter: 2018Q4

REPORT INFORMATION
  Report Type: Spontaneous
  Country: US (occurrence: US)
  Receive Date: 20181218
  Receipt Date: 20181218
  Transmission Date: 20190205
  Serious: No
  Sender: FDA-Public Use
  Company Number: None

PATIENT

DRUGS (3)
  1. MIDAZOLAM HCL [Suspect]
     Active Substance: MIDAZOLAM HYDROCHLORIDE
  2. FENTANYL. [Suspect]
     Active Substance: FENTANYL
  3. DEXMEDETOMIDINE. [Suspect]
     Active Substance: DEXMEDETOMIDINE

REACTIONS (6)
  - Tachycardia [None]
  - Product name confusion [None]
  - Incorrect product administration duration [None]
  - Withdrawal syndrome [None]
  - Diarrhoea [None]
  - Hypertension [None]
